FAERS Safety Report 10703199 (Version 1)
Quarter: 2015Q1

REPORT INFORMATION
  Report Type: Spontaneous
  Country: IT (occurrence: IT)
  Receive Date: 20150112
  Receipt Date: 20150112
  Transmission Date: 20150721
  Serious: Yes (Other)
  Sender: FDA-Public Use
  Company Number: IT-ROCHE-1519548

PATIENT
  Age: 48 Year
  Sex: Female

DRUGS (3)
  1. BEVACIZUMAB [Suspect]
     Active Substance: BEVACIZUMAB
     Indication: COLORECTAL CANCER METASTATIC
     Dosage: EVERY 21 DAYS
     Route: 042
     Dates: start: 20140314, end: 20140826
  2. FLUOROURACIL. [Suspect]
     Active Substance: FLUOROURACIL
     Indication: COLORECTAL CANCER METASTATIC
     Dosage: EVERY 14 DAYS
     Route: 042
     Dates: start: 20141007, end: 20141216
  3. CAPECITABINE. [Suspect]
     Active Substance: CAPECITABINE
     Indication: COLORECTAL CANCER METASTATIC
     Dosage: FOR 14 DAYS EVERY 21 DAYS
     Route: 048
     Dates: start: 20140314, end: 20140902

REACTIONS (2)
  - Lichenoid keratosis [Recovering/Resolving]
  - Subacute cutaneous lupus erythematosus [Recovering/Resolving]

NARRATIVE: CASE EVENT DATE: 20141020
